FAERS Safety Report 18632721 (Version 1)
Quarter: 2020Q4

REPORT INFORMATION
  Report Type: Spontaneous
  Country: JP (occurrence: JP)
  Receive Date: 20201218
  Receipt Date: 20201218
  Transmission Date: 20210114
  Serious: Yes (Other)
  Sender: FDA-Public Use
  Company Number: JP-ROCHE-2732619

PATIENT
  Age: 81 Year
  Sex: Female

DRUGS (1)
  1. XELODA [Suspect]
     Active Substance: CAPECITABINE
     Indication: PRODUCT USED FOR UNKNOWN INDICATION
     Dosage: DOSAGE WAS UNCERTAIN.
     Route: 048

REACTIONS (3)
  - Cataract [Unknown]
  - Lacrimation increased [Unknown]
  - Vision blurred [Unknown]
